FAERS Safety Report 23811189 (Version 2)
Quarter: 2024Q2

REPORT INFORMATION
  Report Type: Report from Study
  Country: US (occurrence: US)
  Receive Date: 20240502
  Receipt Date: 20240515
  Transmission Date: 20240716
  Serious: No
  Sender: FDA-Public Use
  Company Number: US-BRISTOL-MYERS SQUIBB COMPANY-2024-067435

PATIENT
  Age: 46 Year
  Sex: Female

DRUGS (2)
  1. SOTYKTU [Suspect]
     Active Substance: DEUCRAVACITINIB
     Indication: Psoriatic arthropathy
     Route: 048
     Dates: start: 20240424
  2. ACYCLOVIR [Concomitant]
     Active Substance: ACYCLOVIR
     Indication: Condition aggravated

REACTIONS (9)
  - Lip erythema [Unknown]
  - Oral mucosal erythema [Unknown]
  - Lip pain [Unknown]
  - Oral pain [Unknown]
  - Genital disorder [Unknown]
  - Vaginal disorder [Unknown]
  - Acne [Unknown]
  - Psoriasis [Unknown]
  - Oral herpes [Unknown]

NARRATIVE: CASE EVENT DATE: 20240514
